FAERS Safety Report 4852213-2 (Version None)
Quarter: 2005Q4

REPORT INFORMATION
  Report Type: 
  Country: None (occurrence: None)
  Receive Date: 20051213
  Receipt Date: 20051205
  Transmission Date: 20060501
  Serious: Yes (Hospitalization)
  Sender: FDA-Public Use
  Company Number: FR-GLAXOSMITHKLINE-B0403266A

PATIENT
  Age: 69 Year
  Sex: Female

DRUGS (2)
  1. AUGMENTIN '125' [Suspect]
     Indication: LUNG INFECTION
     Dosage: 2G THREE TIMES PER DAY
     Route: 042
     Dates: start: 20051016, end: 20051020
  2. ROVAMYCINE [Suspect]
     Indication: LUNG INFECTION
     Dosage: 1.5MU THREE TIMES PER DAY
     Route: 042
     Dates: start: 20051016, end: 20051020

REACTIONS (1)
  - PANCYTOPENIA [None]
